FAERS Safety Report 6842242-1 (Version None)
Quarter: 2010Q3

REPORT INFORMATION
  Report Type: 
  Country: None (occurrence: None)
  Receive Date: 20100709
  Receipt Date: 20100630
  Transmission Date: 20110219
  Serious: Yes (Hospitalization)
  Sender: FDA-Public Use
  Company Number: 8047091

PATIENT
  Sex: Female
  Weight: 77 kg

DRUGS (10)
  1. CERTOLIZUMAB PEGOL (CDP870) [Suspect]
     Indication: RHEUMATOID ARTHRITIS
     Dosage: SEE IMAGE
     Route: 058
     Dates: start: 20050315, end: 20050621
  2. CERTOLIZUMAB PEGOL (CDP870) [Suspect]
     Indication: RHEUMATOID ARTHRITIS
     Dosage: SEE IMAGE
     Route: 058
     Dates: start: 20050704, end: 20080506
  3. CERTOLIZUMAB PEGOL (CDP870) [Suspect]
     Indication: RHEUMATOID ARTHRITIS
     Dosage: SEE IMAGE
     Route: 058
     Dates: start: 20080520, end: 20090519
  4. CERTOLIZUMAB PEGOL (CDP870) [Suspect]
     Indication: RHEUMATOID ARTHRITIS
     Dosage: SEE IMAGE
     Route: 058
     Dates: start: 20090616
  5. METHOTREXATE [Concomitant]
  6. METHYLPREDNISOLONE [Concomitant]
  7. CALTRATE PLUS /01438001/ [Concomitant]
  8. SIMEPAR [Concomitant]
  9. MELOXICAM [Concomitant]
  10. RAMIPRIL [Concomitant]

REACTIONS (9)
  - CARDIAC MURMUR [None]
  - CHEST PAIN [None]
  - HEART RATE INCREASED [None]
  - HYPERTENSION [None]
  - LEUKOCYTOSIS [None]
  - MYOCARDIAL INFARCTION [None]
  - MYOCARDITIS [None]
  - PERICARDIAL EFFUSION [None]
  - STRESS CARDIOMYOPATHY [None]
